FAERS Safety Report 18038365 (Version 2)
Quarter: 2020Q3

REPORT INFORMATION
  Report Type: Spontaneous
  Country: CN (occurrence: CN)
  Receive Date: 20200717
  Receipt Date: 20200723
  Transmission Date: 20201103
  Serious: Yes (Death, Other)
  Sender: FDA-Public Use
  Company Number: CN-BAYER-2020-143320

PATIENT
  Age: 85 Year
  Sex: Male

DRUGS (2)
  1. AVELOX [Suspect]
     Active Substance: MOXIFLOXACIN HYDROCHLORIDE
     Indication: NOSOCOMIAL INFECTION
     Dosage: 250 ML, QD
     Route: 041
     Dates: start: 20181026
  2. OSIMERTINIB. [Suspect]
     Active Substance: OSIMERTINIB
     Indication: TARGETED CANCER THERAPY
     Dosage: 80 MG, QD
     Dates: start: 201804

REACTIONS (3)
  - Loss of consciousness [None]
  - Blood pressure decreased [None]
  - Torsade de pointes [Fatal]

NARRATIVE: CASE EVENT DATE: 20181026
